FAERS Safety Report 4787098-6 (Version None)
Quarter: 2005Q4

REPORT INFORMATION
  Report Type: 
  Country: None (occurrence: None)
  Receive Date: 20051004
  Receipt Date: 20050923
  Transmission Date: 20060501
  Serious: Yes (Other)
  Sender: FDA-Public Use
  Company Number: PHEH2005US10614

PATIENT
  Age: 59 Year
  Sex: Female
  Weight: 128 kg

DRUGS (4)
  1. ZOMETA [Suspect]
     Indication: MULTIPLE MYELOMA
     Dosage: 4 MG IV QMONTH
     Route: 042
     Dates: start: 20020327, end: 20050802
  2. OXYCONTIN [Concomitant]
  3. MELPHALAN [Concomitant]
  4. PREDNISONE [Concomitant]

REACTIONS (1)
  - OSTEONECROSIS [None]
